FAERS Safety Report 17107192 (Version 1)
Quarter: 2019Q4

REPORT INFORMATION
  Report Type: Report from Study
  Country: US (occurrence: US)
  Receive Date: 20191204
  Receipt Date: 20191204
  Transmission Date: 20200122
  Serious: No
  Sender: FDA-Public Use
  Company Number: NVSC2019US056643

PATIENT

DRUGS (1)
  1. COSENTYX [Suspect]
     Active Substance: SECUKINUMAB
     Indication: PSORIASIS
     Dosage: 300 MG, QW (300 MG Q WEEKLY X 5 WEEKS THEN 300 MG Q4 WEEKS)
     Route: 058
     Dates: start: 20190816

REACTIONS (1)
  - Skin exfoliation [Unknown]
